FAERS Safety Report 20110204 (Version 2)
Quarter: 2022Q2

REPORT INFORMATION
  Report Type: Spontaneous
  Country: US (occurrence: US)
  Receive Date: 20211124
  Receipt Date: 20220506
  Transmission Date: 20220721
  Serious: Yes (Other)
  Sender: FDA-Public Use
  Company Number: US-GILEAD-2021-0557413

PATIENT
  Sex: Female
  Weight: 92.517 kg

DRUGS (46)
  1. VIREAD [Suspect]
     Active Substance: TENOFOVIR DISOPROXIL FUMARATE
     Indication: HIV infection
     Dosage: UNK
     Route: 048
     Dates: start: 2004
  2. VIREAD [Suspect]
     Active Substance: TENOFOVIR DISOPROXIL FUMARATE
     Dosage: UNK
     Route: 048
     Dates: start: 200212, end: 200409
  3. TRUVADA [Suspect]
     Active Substance: EMTRICITABINE\TENOFOVIR DISOPROXIL FUMARATE
     Indication: HIV infection
     Dosage: UNK
     Route: 048
     Dates: start: 2004
  4. TRUVADA [Suspect]
     Active Substance: EMTRICITABINE\TENOFOVIR DISOPROXIL FUMARATE
     Dosage: UNK
     Route: 048
     Dates: start: 200807, end: 201611
  5. DESCOVY [Concomitant]
     Active Substance: EMTRICITABINE\TENOFOVIR ALAFENAMIDE FUMARATE
  6. EPIVIR [Concomitant]
     Active Substance: LAMIVUDINE
  7. INVIRASE [Concomitant]
     Active Substance: SAQUINAVIR MESYLATE
  8. ISENTRESS [Concomitant]
     Active Substance: RALTEGRAVIR POTASSIUM
  9. KALETRA [Concomitant]
     Active Substance: LOPINAVIR\RITONAVIR
  10. NORVIR [Concomitant]
     Active Substance: RITONAVIR
  11. PREZCOBIX [Concomitant]
     Active Substance: COBICISTAT\DARUNAVIR ETHANOLATE
  12. PREZISTA [Concomitant]
     Active Substance: DARUNAVIR ETHANOLATE
  13. REYATAZ [Concomitant]
     Active Substance: ATAZANAVIR SULFATE
  14. SYMTUZA [Concomitant]
     Active Substance: COBICISTAT\DARUNAVIR\EMTRICITABINE\TENOFOVIR ALAFENAMIDE
  15. TIVICAY [Concomitant]
     Active Substance: DOLUTEGRAVIR SODIUM
  16. VIDEX [Concomitant]
     Active Substance: DIDANOSINE
  17. VIDEX EC [Concomitant]
     Active Substance: DIDANOSINE
  18. VIRACEPT [Concomitant]
     Active Substance: NELFINAVIR MESYLATE
  19. VIRAMUNE [Concomitant]
     Active Substance: NEVIRAPINE
  20. METOPROLOL [Concomitant]
     Active Substance: METOPROLOL
  21. LOSARTAN [Concomitant]
     Active Substance: LOSARTAN
  22. PANTOPRAZOLE [Concomitant]
     Active Substance: PANTOPRAZOLE
  23. AMLODIPINE [Concomitant]
     Active Substance: AMLODIPINE BESYLATE
  24. CEPHALEXIN [Concomitant]
     Active Substance: CEPHALEXIN
  25. CHLORTHALIDONE [Concomitant]
     Active Substance: CHLORTHALIDONE
  26. ESTRADIOL [Concomitant]
     Active Substance: ESTRADIOL
  27. MEDROXYPROGESTERONE [Concomitant]
     Active Substance: MEDROXYPROGESTERONE
  28. AZITHROMYCIN [Concomitant]
     Active Substance: AZITHROMYCIN
  29. ALBUTEROL SULFATE [Concomitant]
     Active Substance: ALBUTEROL SULFATE
  30. POTASSIUM [Concomitant]
     Active Substance: POTASSIUM
  31. AMOXICILLIN\CLAVULANIC ACID [Concomitant]
     Active Substance: AMOXICILLIN\CLAVULANIC ACID
  32. CLINDAMYCIN [Concomitant]
     Active Substance: CLINDAMYCIN
  33. CEFADROXIL [Concomitant]
     Active Substance: CEFADROXIL
  34. LIDOCAINE [Concomitant]
     Active Substance: LIDOCAINE
  35. METHOCARBAMOL [Concomitant]
     Active Substance: METHOCARBAMOL
  36. BREO ELLIPTA [Concomitant]
     Active Substance: FLUTICASONE FUROATE\VILANTEROL TRIFENATATE
  37. TOPIRAMATE [Concomitant]
     Active Substance: TOPIRAMATE
  38. DEXAMETHASONE [Concomitant]
     Active Substance: DEXAMETHASONE
  39. CLOTRIMAZOLE [Concomitant]
     Active Substance: CLOTRIMAZOLE
  40. ORTHO TRI CYCLEN [Concomitant]
     Active Substance: ETHINYL ESTRADIOL\NORGESTIMATE
  41. CEFZIL [Concomitant]
     Active Substance: CEFPROZIL
  42. COLCHICINE [Concomitant]
     Active Substance: COLCHICINE
  43. AMBIEN [Concomitant]
     Active Substance: ZOLPIDEM TARTRATE
  44. TRAMADOL [Concomitant]
     Active Substance: TRAMADOL
  45. OMEPRAZOLE [Concomitant]
     Active Substance: OMEPRAZOLE
  46. LORAZEPAM [Concomitant]
     Active Substance: LORAZEPAM

REACTIONS (17)
  - Osteoporosis [Not Recovered/Not Resolved]
  - Suicidal ideation [Unknown]
  - Bone demineralisation [Unknown]
  - Foot fracture [Unknown]
  - Bone pain [Unknown]
  - Gait disturbance [Unknown]
  - Crying [Unknown]
  - Mobility decreased [Not Recovered/Not Resolved]
  - Anhedonia [Not Recovered/Not Resolved]
  - Emotional distress [Not Recovered/Not Resolved]
  - Arthralgia [Unknown]
  - Muscle spasms [Unknown]
  - Muscle spasms [Unknown]
  - Anxiety [Not Recovered/Not Resolved]
  - Pain [Not Recovered/Not Resolved]
  - Depression [Not Recovered/Not Resolved]
  - Headache [Unknown]

NARRATIVE: CASE EVENT DATE: 20150101
